FAERS Safety Report 5937595-2 (Version None)
Quarter: 2008Q4

REPORT INFORMATION
  Report Type: 
  Country: None (occurrence: None)
  Receive Date: 20081031
  Receipt Date: 20081022
  Transmission Date: 20090506
  Serious: Yes (Hospitalization)
  Sender: FDA-Public Use
  Company Number: ES-JNJFOC-20081001386

PATIENT
  Age: 74 Year
  Sex: Male
  Weight: 88.5 kg

DRUGS (8)
  1. INFLIXIMAB, RECOMBINANT [Suspect]
     Route: 042
  2. INFLIXIMAB, RECOMBINANT [Suspect]
     Indication: POLYMYALGIA RHEUMATICA
     Route: 042
  3. URBASON [Concomitant]
     Indication: MYALGIA
     Route: 048
  4. TIOTRPIUM [Concomitant]
     Indication: CHRONIC OBSTRUCTIVE PULMONARY DISEASE
     Route: 055
  5. FLUTICASONE PROPIONATE [Concomitant]
     Indication: CHRONIC OBSTRUCTIVE PULMONARY DISEASE
     Route: 055
  6. SALMETEROL [Concomitant]
     Indication: CHRONIC OBSTRUCTIVE PULMONARY DISEASE
     Route: 055
  7. OMEPRAZOLE [Concomitant]
     Indication: ULCER
     Route: 048
  8. CALCIUM/VITAMIN D [Concomitant]
     Indication: OSTEOPOROSIS PROPHYLAXIS
     Dosage: 1/800
     Route: 048

REACTIONS (2)
  - CHRONIC OBSTRUCTIVE PULMONARY DISEASE [None]
  - UPPER RESPIRATORY TRACT INFECTION [None]
